FAERS Safety Report 13818918 (Version 1)
Quarter: 2017Q3

REPORT INFORMATION
  Report Type: Other
  Country: US (occurrence: US)
  Receive Date: 20170801
  Receipt Date: 20170801
  Transmission Date: 20171127
  Serious: Yes (Life-Threatening, Hospitalization, Other)
  Sender: FDA-Public Use
  Company Number: US-ACORDA-ACO_133370_2017

PATIENT
  Age: 56 Year
  Sex: Male

DRUGS (1)
  1. AMPYRA [Suspect]
     Active Substance: DALFAMPRIDINE
     Indication: MULTIPLE SCLEROSIS
     Dosage: 10 MG, Q 12 HRS
     Route: 048
     Dates: start: 20130830

REACTIONS (4)
  - Rib fracture [Recovered/Resolved]
  - Accident [Unknown]
  - Road traffic accident [Recovered/Resolved]
  - Sternal fracture [Recovered/Resolved]

NARRATIVE: CASE EVENT DATE: 201612
